FAERS Safety Report 11703927 (Version 1)
Quarter: 2015Q4

REPORT INFORMATION
  Report Type: Spontaneous
  Country: US (occurrence: None)
  Receive Date: 20151105
  Receipt Date: 20151105
  Transmission Date: 20160304
  Serious: Yes (Hospitalization)
  Sender: FDA-Public Use
  Company Number: None

PATIENT
  Age: 38 Year
  Sex: Female
  Weight: 73.03 kg

DRUGS (27)
  1. BIDMUTH SUBSALICYLATE [Concomitant]
  2. THROAT LOZENGES [Concomitant]
     Active Substance: UNSPECIFIED INGREDIENT
  3. SUMATRIPTAN 50MG [Suspect]
     Active Substance: SUMATRIPTAN
     Indication: HEADACHE
     Route: 048
     Dates: start: 20151016
  4. ALBUTEROL HFA INHALER [Concomitant]
  5. ALUMINA AND MAG. CARB ALGINIC GAVISCON [Concomitant]
  6. DULOXETINE. [Concomitant]
     Active Substance: DULOXETINE
  7. FISH OIL [Concomitant]
     Active Substance: FISH OIL
  8. ABIDKLRX5 [Concomitant]
  9. CHLORPROMAZINE. [Concomitant]
     Active Substance: CHLORPROMAZINE
  10. PANTOPRAZOLE [Concomitant]
     Active Substance: PANTOPRAZOLE SODIUM
  11. POLYETHYLINE GLYCOL POWDER [Concomitant]
  12. CAPSAICIN CREAM [Concomitant]
  13. SENNA-S [Concomitant]
     Active Substance: DOCUSATE SODIUM\SENNOSIDES
  14. TOLTERAZINE LA [Concomitant]
  15. AMINOBENZOIC ACID SUNSCREEN [Concomitant]
  16. LORAZEPAM. [Concomitant]
     Active Substance: LORAZEPAM
  17. ROPINIROLE. [Concomitant]
     Active Substance: ROPINIROLE
  18. KAO [Concomitant]
  19. ABIDAAPP [Concomitant]
  20. ULT-TRAMADOL [Concomitant]
  21. CYCLOBENZAPRINE [Concomitant]
     Active Substance: CYCLOBENZAPRINE
  22. MIRALAX [Concomitant]
     Active Substance: POLYETHYLENE GLYCOL 3350
  23. MINERALS W/MULTIVITAMIN [Concomitant]
  24. CLOTRIMAZOLE. [Concomitant]
     Active Substance: CLOTRIMAZOLE
  25. HEPATITIS B VACCINE [Concomitant]
     Active Substance: HEPATITIS B VIRUS VACCINE
  26. NICOTINE LOZENGE [Concomitant]
     Active Substance: NICOTINE
  27. VISTARIL/HYDRIXYZINE [Concomitant]

REACTIONS (2)
  - Chest pain [None]
  - Hypoaesthesia [None]

NARRATIVE: CASE EVENT DATE: 20151016
